FAERS Safety Report 5841392-6 (Version None)
Quarter: 2008Q3

REPORT INFORMATION
  Report Type: 
  Country: None (occurrence: None)
  Receive Date: 20080812
  Receipt Date: 20080804
  Transmission Date: 20090109
  Serious: Yes (Other)
  Sender: FDA-Public Use
  Company Number: PHHO2008FR06564

PATIENT
  Weight: 69 kg

DRUGS (6)
  1. ZOLEDRONIC ACID [Suspect]
     Indication: BONE SARCOMA
     Dosage: 4 MG, UNK
     Route: 042
     Dates: start: 20080128
  2. OROCAL D3 [Concomitant]
  3. DOXORUBICIN HCL [Concomitant]
  4. IFOSFAMIDE [Concomitant]
  5. CISPLATIN [Concomitant]
  6. POTASSIUM GLUCONATE TAB [Concomitant]

REACTIONS (2)
  - HYPOCALCAEMIA [None]
  - TETANY [None]
